FAERS Safety Report 7769467-5 (Version None)
Quarter: 2011Q3

REPORT INFORMATION
  Report Type: 
  Country: None (occurrence: None)
  Receive Date: 20110920
  Receipt Date: 20110912
  Transmission Date: 20111222
  Serious: Yes (Hospitalization, Other)
  Sender: FDA-Public Use
  Company Number: ACO_26277_2011

PATIENT
  Age: 56 Year
  Sex: Female
  Weight: 93 kg

DRUGS (14)
  1. QUINARETIC (HYDROCHLOROTHIAZIDE, QUINAPRIL HYDROCHLORIDE) [Concomitant]
  2. CALCIUM + VITAMIN D /01483701/ (CALCIUM, COLECALCIFEROL) [Concomitant]
  3. CLONAZEPAM [Concomitant]
  4. AMPYRA [Suspect]
     Indication: GAIT DISTURBANCE
     Dosage: 10 MG, BID, ORAL
     Route: 048
     Dates: end: 20110717
  5. AMPYRA [Suspect]
     Indication: MULTIPLE SCLEROSIS
     Dosage: 10 MG, BID, ORAL
     Route: 048
     Dates: end: 20110717
  6. VYTORIN [Concomitant]
  7. TOPROL-XL [Concomitant]
  8. BONIVA [Concomitant]
  9. NEXIUM	/01479302/ (ESOMEPRAZOLE MAGNESIUM) [Concomitant]
  10. MOTRIN [Concomitant]
  11. COPAXONE [Concomitant]
  12. OMEGA 3	/06852001/ (DOCOSAHEXAENOIC ACID, EICOSAPENTAENOIC ACID) [Concomitant]
  13. MULTIVITAMIN /00831701/ (VITAMINS NOS) [Concomitant]
  14. METOPROLOL TARTRATE [Concomitant]

REACTIONS (1)
  - ANAPHYLACTIC SHOCK [None]
